FAERS Safety Report 8775910 (Version 1)
Quarter: 2012Q4

REPORT INFORMATION
  Report Type: 
  Country: US (occurrence: US)
  Receive Date: 20120910
  Receipt Date: 20120910
  Transmission Date: 20130627
  Serious: Yes (Other)
  Sender: FDA-Public Use
  Company Number: US-ROCHE-1118459

PATIENT

DRUGS (7)
  1. AVASTIN [Suspect]
     Indication: PRODUCT USED FOR UNKNOWN INDICATION
     Route: 041
  2. CETUXIMAB [Concomitant]
  3. LEUCOVORIN [Concomitant]
  4. FLUOROURACIL [Concomitant]
  5. IRINOTECAN [Concomitant]
  6. OXALIPLATIN [Concomitant]
  7. 5-FLUOROURACIL [Concomitant]

REACTIONS (1)
  - Skin toxicity [Unknown]
